FAERS Safety Report 7819750-X (Version None)
Quarter: 2011Q4

REPORT INFORMATION
  Report Type: 
  Country: None (occurrence: None)
  Receive Date: 20111018
  Receipt Date: 20110113
  Transmission Date: 20120403
  Serious: No
  Sender: FDA-Public Use
  Company Number: US-ASTRAZENECA-2010SE16582

PATIENT
  Age: 54 Year
  Sex: Female

DRUGS (8)
  1. SYMBICORT [Suspect]
     Dosage: 160/4.5 2 PUFFS BID
     Route: 055
     Dates: start: 20090101
  2. SYMBICORT [Suspect]
     Indication: ASTHMA
     Dosage: 160/4.5 2 PUFFS BID
     Route: 055
     Dates: start: 20090101
  3. SYMBICORT [Suspect]
     Dosage: 320 MCG DAILY
     Route: 055
     Dates: start: 20090101
  4. SYMBICORT [Suspect]
     Route: 055
  5. SYMBICORT [Suspect]
     Dosage: 160/4.5 2 PUFFS BID
     Route: 055
     Dates: start: 20090101
  6. EXFORGE [Concomitant]
     Indication: HYPERTENSION
  7. SYMBICORT [Suspect]
     Dosage: 160/4.5 2 PUFFS BID
     Route: 055
     Dates: start: 20090101
  8. PREVACID [Concomitant]

REACTIONS (6)
  - DRUG INEFFECTIVE [None]
  - DRUG DOSE OMISSION [None]
  - DYSPNOEA [None]
  - ASTHMA [None]
  - INCORRECT DOSE ADMINISTERED [None]
  - FATIGUE [None]
